FAERS Safety Report 4785464-6 (Version None)
Quarter: 2005Q3

REPORT INFORMATION
  Report Type: 
  Country: None (occurrence: None)
  Receive Date: 20050927
  Receipt Date: 20050907
  Transmission Date: 20060218
  Serious: Yes (Death)
  Sender: FDA-Public Use
  Company Number: GAM-044-05-USA

PATIENT
  Sex: Male

DRUGS (1)
  1. OCTAGAM [Suspect]

REACTIONS (6)
  - BLOOD GLUCOSE DECREASED [None]
  - COMA [None]
  - DISORIENTATION [None]
  - HYPOTONIA [None]
  - LOSS OF CONSCIOUSNESS [None]
  - PUPILLARY REFLEX IMPAIRED [None]
